FAERS Safety Report 11654824 (Version 10)
Quarter: 2017Q2

REPORT INFORMATION
  Report Type: Report from Study
  Country: IT (occurrence: IT)
  Receive Date: 20151023
  Receipt Date: 20170425
  Transmission Date: 20170829
  Serious: Yes (Other)
  Sender: FDA-Public Use
  Company Number: PHHY2015IT135194

PATIENT
  Age: 51 Year
  Sex: Male

DRUGS (3)
  1. IRBESARTAN. [Concomitant]
     Active Substance: IRBESARTAN
     Indication: PRODUCT USED FOR UNKNOWN INDICATION
     Dosage: 150 MG, QD
     Route: 065
     Dates: start: 2000
  2. MIRTAZAPINE. [Concomitant]
     Active Substance: MIRTAZAPINE
     Indication: PRODUCT USED FOR UNKNOWN INDICATION
     Dosage: 7.5 MG, BID
     Route: 065
     Dates: start: 20150910
  3. TASIGNA [Suspect]
     Active Substance: NILOTINIB
     Indication: CHRONIC MYELOID LEUKAEMIA
     Dosage: 300 MG, BID
     Route: 048
     Dates: start: 20130724

REACTIONS (5)
  - Anxiety disorder [Unknown]
  - Primary hypothyroidism [Recovering/Resolving]
  - Depression [Unknown]
  - Onychomycosis [Unknown]
  - Autoimmune thyroiditis [Recovering/Resolving]

NARRATIVE: CASE EVENT DATE: 20140430
